FAERS Safety Report 21478161 (Version 1)
Quarter: 2022Q4

REPORT INFORMATION
  Report Type: Report from Study
  Country: FR (occurrence: FR)
  Receive Date: 20221019
  Receipt Date: 20221019
  Transmission Date: 20230113
  Serious: Yes (Other)
  Sender: FDA-Public Use
  Company Number: FR-GBT-017167

PATIENT
  Age: 36 Year
  Sex: Male

DRUGS (2)
  1. VOXELOTOR [Suspect]
     Active Substance: VOXELOTOR
     Indication: Haemolytic anaemia
  2. VOXELOTOR [Suspect]
     Active Substance: VOXELOTOR

REACTIONS (3)
  - Multiple organ dysfunction syndrome [Unknown]
  - Haemolysis [Unknown]
  - Sepsis [Unknown]
